FAERS Safety Report 7939102-1 (Version None)
Quarter: 2011Q4

REPORT INFORMATION
  Report Type: 
  Country: None (occurrence: None)
  Receive Date: 20111124
  Receipt Date: 20111110
  Transmission Date: 20120403
  Serious: Yes (Other)
  Sender: FDA-Public Use
  Company Number: US-ROCHE-1007854

PATIENT
  Sex: Female

DRUGS (2)
  1. ZELBORAF [Suspect]
     Route: 065
  2. ZELBORAF [Suspect]
     Indication: PRODUCT USED FOR UNKNOWN INDICATION
     Route: 065

REACTIONS (14)
  - SINUSITIS [None]
  - SKIN DISCOLOURATION [None]
  - ERYTHEMA [None]
  - FATIGUE [None]
  - TINNITUS [None]
  - DECREASED APPETITE [None]
  - ABDOMINAL DISCOMFORT [None]
  - JOINT SWELLING [None]
  - HEADACHE [None]
  - INFLUENZA LIKE ILLNESS [None]
  - ARTHRALGIA [None]
  - NAUSEA [None]
  - ENTEROCOLITIS HAEMORRHAGIC [None]
  - ALOPECIA [None]
